FAERS Safety Report 8246548-3 (Version None)
Quarter: 2012Q1

REPORT INFORMATION
  Report Type: 
  Country: None (occurrence: None)
  Receive Date: 20120330
  Receipt Date: 20120323
  Transmission Date: 20120608
  Serious: Yes (Other)
  Sender: FDA-Public Use
  Company Number: US-BRISTOL-MYERS SQUIBB COMPANY-16474157

PATIENT
  Sex: Female

DRUGS (1)
  1. ABILIFY [Suspect]
     Dates: end: 20120101

REACTIONS (2)
  - HEPATIC ENZYME INCREASED [None]
  - HEPATIC STEATOSIS [None]
